FAERS Safety Report 9313999 (Version 2)
Quarter: 2013Q2

REPORT INFORMATION
  Report Type: Spontaneous
  Country: CA (occurrence: CA)
  Receive Date: 20130529
  Receipt Date: 20130621
  Transmission Date: 20140414
  Serious: Yes (Hospitalization)
  Sender: FDA-Public Use
  Company Number: CA-AMGEN-CANSP2013037393

PATIENT
  Age: 61 Year
  Sex: Female

DRUGS (4)
  1. NEULASTA [Suspect]
     Indication: BREAST CANCER
     Dosage: 10 MG/ML, UNK
     Route: 065
     Dates: start: 20130509, end: 20130516
  2. LIPITOR [Concomitant]
     Dosage: UNK
  3. CALCIUM [Concomitant]
     Dosage: UNK
  4. VIT D [Concomitant]
     Dosage: UNK

REACTIONS (1)
  - Febrile neutropenia [Recovered/Resolved]
